FAERS Safety Report 5371317-1 (Version None)
Quarter: 2007Q2

REPORT INFORMATION
  Report Type: 
  Country: None (occurrence: None)
  Receive Date: 20070615
  Receipt Date: 20061002
  Transmission Date: 20071010
  Serious: Yes (Other)
  Sender: FDA-Public Use
  Company Number: 200618256US

PATIENT
  Age: 44 Year
  Sex: Female
  Weight: 75 kg

DRUGS (6)
  1. LANTUS [Suspect]
     Indication: DIABETES MELLITUS
     Dosage: 35 U QD
     Dates: start: 20010101
  2. LANTUS [Suspect]
     Indication: DIABETES MELLITUS
     Dosage: 5 U QD
  3. INSULIN HUMAN (HUMULIN R) [Suspect]
  4. HUMALOG [Suspect]
     Dosage: 10 PLUS SLIDING SCALE U
  5. HUMALOG [Suspect]
  6. LORATADINE (CLARITINE) [Concomitant]

REACTIONS (4)
  - HYPOGLYCAEMIA [None]
  - HYPOGLYCAEMIA UNAWARENESS [None]
  - HYPOGLYCAEMIC COMA [None]
  - HYPOGLYCAEMIC SEIZURE [None]
